FAERS Safety Report 5598424-2 (Version None)
Quarter: 2007Q4

REPORT INFORMATION
  Report Type: 
  Country: None (occurrence: None)
  Receive Date: 20071226
  Receipt Date: 20071031
  Transmission Date: 20080405
  Serious: No
  Sender: FDA-Public Use
  Company Number: 2007PV033185

PATIENT
  Age: 69 Year
  Sex: Male
  Weight: 69.4003 kg

DRUGS (4)
  1. SYMLIN [Suspect]
     Indication: TYPE 1 DIABETES MELLITUS
     Dosage: 2.5, 90 MCG,TID,SC
     Route: 058
     Dates: start: 20070601, end: 20070709
  2. SYMLIN [Suspect]
     Indication: TYPE 1 DIABETES MELLITUS
     Dosage: 2.5, 90 MCG,TID,SC
     Route: 058
     Dates: start: 20070710, end: 20070731
  3. SYMLIN [Suspect]
     Indication: TYPE 1 DIABETES MELLITUS
     Dosage: 2.5, 90 MCG,TID,SC
     Route: 058
     Dates: start: 20070801
  4. NOVOLOG [Concomitant]

REACTIONS (4)
  - BLOOD GLUCOSE DECREASED [None]
  - BLOOD GLUCOSE INCREASED [None]
  - INCORRECT DOSE ADMINISTERED [None]
  - NIGHT SWEATS [None]
